FAERS Safety Report 6686623-8 (Version None)
Quarter: 2010Q2

REPORT INFORMATION
  Report Type: 
  Country: None (occurrence: None)
  Receive Date: 20100419
  Receipt Date: 20100406
  Transmission Date: 20101027
  Serious: Yes (Hospitalization, Other)
  Sender: FDA-Public Use
  Company Number: US-ELI_LILLY_AND_COMPANY-US201004001379

PATIENT
  Sex: Female
  Weight: 112 kg

DRUGS (12)
  1. BYETTA [Suspect]
     Indication: TYPE 2 DIABETES MELLITUS
     Dosage: 5 UG, 2/D
  2. BYETTA [Suspect]
     Dosage: 10 UG, 2/D
  3. CELEBREX [Concomitant]
     Indication: ARTHRITIS
     Dosage: 200 MG, DAILY (1/D)
  4. PRISTIQ [Concomitant]
     Indication: DEPRESSION
     Dosage: 50 MG, DAILY (1/D)
  5. LISINOPRIL [Concomitant]
     Indication: BLOOD PRESSURE
     Dosage: 10 MG, DAILY (1/D)
  6. PLAVIX [Concomitant]
     Dosage: 75 MG, DAILY (1/D)
  7. HUMULIN N [Concomitant]
     Indication: TYPE 2 DIABETES MELLITUS
     Dosage: 45 U, 2/D
  8. RANEXA [Concomitant]
     Indication: CARDIAC DISORDER
     Dosage: 500 MG, 2/D
  9. ASPIRIN [Concomitant]
     Dosage: 325 MG, DAILY (1/D)
  10. TOPROL-XL [Concomitant]
     Indication: BLOOD PRESSURE
     Dosage: 100 MG, DAILY (1/D)
  11. MULTI-VITAMIN [Concomitant]
     Dosage: UNK, DAILY (1/D)
  12. VITAMIN B-12 [Concomitant]
     Dosage: UNK, OTHER

REACTIONS (7)
  - ANGIOPLASTY [None]
  - BLOOD GLUCOSE INCREASED [None]
  - HEADACHE [None]
  - OFF LABEL USE [None]
  - STENT PLACEMENT [None]
  - VISUAL ACUITY REDUCED [None]
  - WEIGHT DECREASED [None]
